FAERS Safety Report 4307117-0 (Version None)
Quarter: 2004Q1

REPORT INFORMATION
  Report Type: 
  Country: None (occurrence: None)
  Receive Date: 20040225
  Receipt Date: 20040210
  Transmission Date: 20041129
  Serious: Yes (Other)
  Sender: FDA-Public Use
  Company Number: USA040259012

PATIENT
  Sex: Male

DRUGS (2)
  1. HUMULIN R [Suspect]
  2. HUMULIN N [Suspect]

REACTIONS (2)
  - BLOOD GLUCOSE DECREASED [None]
  - CONVULSION [None]
